FAERS Safety Report 4956474-0 (Version None)
Quarter: 2006Q1

REPORT INFORMATION
  Report Type: 
  Country: None (occurrence: None)
  Receive Date: 20060329
  Receipt Date: 20060119
  Transmission Date: 20060701
  Serious: Yes (Death, Other)
  Sender: FDA-Public Use
  Company Number: US-BRISTOL-MYERS SQUIBB COMPANY-13253679

PATIENT
  Age: 29 Year
  Sex: Male
  Weight: 73 kg

DRUGS (6)
  1. ABILIFY [Suspect]
     Indication: BIPOLAR DISORDER
     Route: 048
  2. PERCOCET [Interacting]
     Indication: BACK PAIN
     Route: 048
     Dates: start: 20041201, end: 20041201
  3. REMERON [Concomitant]
     Indication: BIPOLAR DISORDER
     Route: 048
  4. NEURONTIN [Concomitant]
  5. CLONAZEPAM [Concomitant]
  6. NAPROXEN [Concomitant]

REACTIONS (3)
  - ACCIDENTAL OVERDOSE [None]
  - DRUG INTERACTION [None]
  - DRUG LEVEL ABOVE THERAPEUTIC [None]
